FAERS Safety Report 8512979-7 (Version None)
Quarter: 2012Q3

REPORT INFORMATION
  Report Type: 
  Country: None (occurrence: None)
  Receive Date: 20120716
  Receipt Date: 20120703
  Transmission Date: 20120928
  Serious: Yes (Other)
  Sender: FDA-Public Use
  Company Number: US-MYLANLABS-2012S1013494

PATIENT
  Age: 32 Month
  Sex: Female

DRUGS (1)
  1. FUROSEMIDE [Suspect]
     Route: 048
     Dates: start: 20120628, end: 20120628

REACTIONS (3)
  - ACCIDENTAL EXPOSURE [None]
  - POLYURIA [None]
  - BLOOD PRESSURE DECREASED [None]
